FAERS Safety Report 20852046 (Version 2)
Quarter: 2022Q3

REPORT INFORMATION
  Report Type: Spontaneous
  Country: AT (occurrence: AT)
  Receive Date: 20220520
  Receipt Date: 20220725
  Transmission Date: 20221027
  Serious: Yes (Other)
  Sender: FDA-Public Use
  Company Number: AT-NOVARTISPH-NVSC2022AT113583

PATIENT
  Sex: Male
  Weight: 2.45 kg

DRUGS (2)
  1. CARBOPLATIN [Suspect]
     Active Substance: CARBOPLATIN
     Indication: Foetal exposure during pregnancy
     Dosage: MATERNAL EXPOSURE DURING PREGNANCY: AUC 5 (TOTAL 3 CYCLES) AND EACH CYCLE REPEATED EVERY 3 WEEKS
     Route: 064
  2. PACLITAXEL [Suspect]
     Active Substance: PACLITAXEL
     Indication: Foetal exposure during pregnancy
     Dosage: MATERNAL EXPOSURE DURING PREGNANCY: 175 MG/M2 AUC 5 (TOTAL 3 CYCLES),EACH CYCLE REPEATED EVERY 3 W
     Route: 064

REACTIONS (5)
  - Premature baby [Unknown]
  - Low birth weight baby [Unknown]
  - Neonatal respiratory distress syndrome [Unknown]
  - Anaemia neonatal [Unknown]
  - Foetal exposure during pregnancy [Unknown]
